FAERS Safety Report 24353056 (Version 1)
Quarter: 2024Q3

REPORT INFORMATION
  Report Type: Spontaneous
  Country: RU (occurrence: RU)
  Receive Date: 20240923
  Receipt Date: 20240923
  Transmission Date: 20241016
  Serious: No
  Sender: ROCHE
  Company Number: RU-ROCHE-3467499

PATIENT
  Age: 58 Year
  Sex: Female

DRUGS (9)
  1. TRASTUZUMAB [Suspect]
     Active Substance: TRASTUZUMAB
     Indication: Breast cancer stage III
     Dosage: 700 MG - LOADING DOSE
     Route: 041
  2. TRASTUZUMAB [Suspect]
     Active Substance: TRASTUZUMAB
     Indication: Breast cancer stage III
  3. PERTUZUMAB [Suspect]
     Active Substance: PERTUZUMAB
     Indication: Breast cancer stage III
     Dosage: (840 MG - LOADING DOSE)
     Route: 041
  4. PERTUZUMAB [Suspect]
     Active Substance: PERTUZUMAB
     Indication: Breast cancer stage III
  5. DOCETAXEL [Suspect]
     Active Substance: DOCETAXEL\DOCETAXEL ANHYDROUS
     Indication: Breast cancer stage III
     Route: 041
  6. DOCETAXEL [Suspect]
     Active Substance: DOCETAXEL\DOCETAXEL ANHYDROUS
     Indication: Breast cancer stage III
  7. ADO-TRASTUZUMAB EMTANSINE [Suspect]
     Active Substance: ADO-TRASTUZUMAB EMTANSINE
     Indication: Breast cancer stage III
     Dosage: 14 CYCLES
     Route: 065
  8. ADO-TRASTUZUMAB EMTANSINE [Suspect]
     Active Substance: ADO-TRASTUZUMAB EMTANSINE
     Indication: Breast cancer stage III
  9. ANASTROZOLE [Concomitant]
     Active Substance: ANASTROZOLE
     Dosage: PER DAY

REACTIONS (2)
  - Adrenal adenoma [Unknown]
  - Nodule [Unknown]
